FAERS Safety Report 16866862 (Version 14)
Quarter: 2022Q4

REPORT INFORMATION
  Report Type: Report from Study
  Country: SE (occurrence: SE)
  Receive Date: 20190930
  Receipt Date: 20221217
  Transmission Date: 20230113
  Serious: Yes (Hospitalization, Other)
  Sender: FDA-Public Use
  Company Number: SE-ABBVIE-19K-150-2943690-00

PATIENT
  Age: 64 Year
  Sex: Male
  Weight: 84 kg

DRUGS (9)
  1. CARBIDOPA\LEVODOPA [Suspect]
     Active Substance: CARBIDOPA\LEVODOPA
     Indication: Parkinson^s disease
     Route: 050
     Dates: start: 20150901, end: 201509
  2. CARBIDOPA\LEVODOPA [Suspect]
     Active Substance: CARBIDOPA\LEVODOPA
     Dosage: MORNING DOSE: 3.2 ML?CONTINUOUS DOSE: 4.5 ML/H?EXTRA DOSE: 2 ML
     Route: 050
     Dates: start: 20150923
  3. CARBIDOPA\LEVODOPA [Suspect]
     Active Substance: CARBIDOPA\LEVODOPA
     Dosage: CONTINUOUS DOSE DECREASED TO 4.4 ML/H
     Route: 050
     Dates: start: 20191021
  4. CARBIDOPA\LEVODOPA [Suspect]
     Active Substance: CARBIDOPA\LEVODOPA
     Dosage: MD : 6.5 ML CONTINUOUS DOSE: INCREASED FROM 4.0 ML/H TO 4.3 ML/H ED: 2 ML
     Route: 050
     Dates: start: 20200401, end: 2020
  5. CARBIDOPA\LEVODOPA [Suspect]
     Active Substance: CARBIDOPA\LEVODOPA
     Dosage: CURRENT DOSAGE:?CONTINUOUS DOSE: 4.5 ML/H?EXTRA DOSE: 2.3 ML
     Route: 050
     Dates: start: 20200702, end: 202007
  6. CARBIDOPA\LEVODOPA [Suspect]
     Active Substance: CARBIDOPA\LEVODOPA
     Dosage: INCREASED CONTINUOUS DOSE TO 4.6 ML/H
     Route: 050
     Dates: start: 20200706, end: 202007
  7. CARBIDOPA\LEVODOPA [Suspect]
     Active Substance: CARBIDOPA\LEVODOPA
     Dosage: THERAPY DURATION: REMAINS AT 16H
  8. CARBIDOPA\LEVODOPA [Suspect]
     Active Substance: CARBIDOPA\LEVODOPA
     Dosage: CONTINUOUS DOSE INCREASED FROM 4.6 ML/H TO 4.8 ML/H.
     Route: 050
     Dates: start: 20200709
  9. CARBIDOPA\LEVODOPA [Suspect]
     Active Substance: CARBIDOPA\LEVODOPA
     Dosage: DOSE DECREASED FROM 5ML/H TO 4.9ML/H?THERAPY DURATION: REMAINS AT 16H
     Route: 050
     Dates: start: 20221209

REACTIONS (39)
  - Cognitive disorder [Not Recovered/Not Resolved]
  - Peripheral venous disease [Not Recovered/Not Resolved]
  - Haematemesis [Recovering/Resolving]
  - Ileus [Recovered/Resolved]
  - Arthritis [Not Recovered/Not Resolved]
  - Mobility decreased [Not Recovered/Not Resolved]
  - Weight decreased [Unknown]
  - Musculoskeletal stiffness [Recovered/Resolved]
  - Pyrexia [Recovered/Resolved]
  - Cholangitis [Recovered/Resolved]
  - Infection [Recovered/Resolved]
  - Infection [Recovered/Resolved]
  - Hyperkinesia [Unknown]
  - Pancreatitis [Recovered/Resolved]
  - Speech disorder [Recovered/Resolved]
  - Enuresis [Not Recovered/Not Resolved]
  - Arthralgia [Not Recovered/Not Resolved]
  - Joint injury [Not Recovered/Not Resolved]
  - Granuloma [Recovered/Resolved]
  - Device expulsion [Recovered/Resolved]
  - Device loosening [Recovered/Resolved]
  - Nerve injury [Unknown]
  - Fall [Recovering/Resolving]
  - Urinary incontinence [Not Recovered/Not Resolved]
  - Gait disturbance [Recovered/Resolved]
  - Gait disturbance [Not Recovered/Not Resolved]
  - Malaise [Unknown]
  - Therapeutic product effect delayed [Recovered/Resolved]
  - Hallucination [Not Recovered/Not Resolved]
  - Hallucination, visual [Recovered/Resolved]
  - Excessive granulation tissue [Not Recovered/Not Resolved]
  - Stoma site discharge [Recovered/Resolved]
  - Stoma site pain [Not Recovered/Not Resolved]
  - Device dislocation [Recovered/Resolved]
  - Cholecystitis [Not Recovered/Not Resolved]
  - Stoma site hypergranulation [Not Recovered/Not Resolved]
  - Hypokinesia [Recovering/Resolving]
  - Gastric disorder [Recovered/Resolved]
  - Device breakage [Unknown]

NARRATIVE: CASE EVENT DATE: 20190927
